FAERS Safety Report 8999746 (Version 4)
Quarter: 2013Q2

REPORT INFORMATION
  Report Type: Spontaneous
  Country: JP (occurrence: JP)
  Receive Date: 20130102
  Receipt Date: 20130617
  Transmission Date: 20140414
  Serious: Yes (Life-Threatening, Hospitalization)
  Sender: FDA-Public Use
  Company Number: JP-PFIZER INC-2012318300

PATIENT
  Age: 74 Year
  Sex: Male
  Weight: 69.6 kg

DRUGS (4)
  1. CELECOX [Suspect]
     Indication: LUMBAR SPINAL STENOSIS
     Dosage: 100 MG, 2X/DAY
     Route: 048
     Dates: start: 20120911, end: 20120918
  2. MUCOSTA [Suspect]
     Indication: PROPHYLAXIS AGAINST GASTROINTESTINAL ULCER
     Dosage: 100 MG, 2X/DAY
     Route: 048
     Dates: start: 20120911, end: 20120918
  3. METHYCOBAL [Concomitant]
     Indication: LUMBAR SPINAL STENOSIS
     Dosage: UNK
     Route: 048
     Dates: start: 20120911, end: 20120918
  4. LOXONIN [Concomitant]
     Indication: LUMBAR SPINAL STENOSIS
     Dosage: TAPE
     Dates: start: 20120911, end: 20120918

REACTIONS (3)
  - Face oedema [Recovered/Resolved]
  - Oral mucosa erosion [Recovered/Resolved]
  - Rash [Recovered/Resolved]
